FAERS Safety Report 5444583-1 (Version None)
Quarter: 2007Q3

REPORT INFORMATION
  Report Type: 
  Country: None (occurrence: None)
  Receive Date: 20070906
  Receipt Date: 20070904
  Transmission Date: 20080115
  Serious: Yes (Death)
  Sender: FDA-Public Use
  Company Number: US-JNJFOC-20070900752

PATIENT
  Age: 75 Year

DRUGS (2)
  1. LEVAQUIN [Suspect]
     Indication: INTESTINAL PERFORATION
     Route: 065
  2. LEVAQUIN [Suspect]
     Indication: ABDOMINAL INFECTION
     Route: 065

REACTIONS (1)
  - ARRHYTHMIA [None]
